FAERS Safety Report 14943547 (Version 3)
Quarter: 2018Q3

REPORT INFORMATION
  Report Type: Report from Study
  Country: None (occurrence: CZ)
  Receive Date: 20180528
  Receipt Date: 20180703
  Transmission Date: 20181010
  Serious: Yes (Other)
  Sender: FDA-Public Use
  Company Number: CZ-ABBVIE-18P-217-2368063-00

PATIENT
  Sex: Male
  Weight: 75 kg

DRUGS (7)
  1. VIEKIRAX [Suspect]
     Active Substance: OMBITASVIR\PARITAPREVIR\RITONAVIR
     Indication: HEPATIC CIRRHOSIS
     Route: 048
     Dates: start: 20171117, end: 20180208
  2. EXVIERA [Suspect]
     Active Substance: DASABUVIR
     Indication: HEPATIC FIBROSIS
     Route: 048
     Dates: start: 20171117, end: 20180208
  3. ATENOLOL AL [Concomitant]
     Indication: HYPERTENSION
     Dosage: 1?0?0
     Route: 048
  4. CONTROLOC [Concomitant]
     Active Substance: PANTOPRAZOLE SODIUM
     Indication: DYSPEPSIA
     Dosage: 1  0 ? 0
     Route: 048
  5. VIEKIRAX [Suspect]
     Active Substance: OMBITASVIR\PARITAPREVIR\RITONAVIR
     Indication: CHRONIC HEPATITIS C
  6. PERINDOPRIL [Concomitant]
     Active Substance: PERINDOPRIL
     Indication: HYPERTENSION
     Dosage: 1  0 ? 0
     Route: 048
  7. EXVIERA [Suspect]
     Active Substance: DASABUVIR
     Indication: CHRONIC HEPATITIS C

REACTIONS (1)
  - Oesophageal carcinoma [Unknown]
